FAERS Safety Report 7471381-X (Version None)
Quarter: 2011Q2

REPORT INFORMATION
  Report Type: 
  Country: None (occurrence: None)
  Receive Date: 20110510
  Receipt Date: 20110428
  Transmission Date: 20111010
  Serious: Yes (Other)
  Sender: FDA-Public Use
  Company Number: CA-ELI_LILLY_AND_COMPANY-CA201104007816

PATIENT
  Sex: Male
  Weight: 108.39 kg

DRUGS (9)
  1. EFFEXOR XR [Concomitant]
  2. RIVOTRIL [Concomitant]
  3. ASPIRIN [Concomitant]
  4. ZYPREXA [Suspect]
     Indication: MAJOR DEPRESSION
     Dosage: 5 MG, QD
     Dates: start: 20050804
  5. TENORMIN [Concomitant]
  6. ZYPREXA [Suspect]
     Dosage: 2.5 MG, QD
  7. PAXIL [Concomitant]
  8. SEROQUEL [Concomitant]
  9. CELEBREX [Concomitant]

REACTIONS (6)
  - TYPE 2 DIABETES MELLITUS [None]
  - HYPERTRIGLYCERIDAEMIA [None]
  - WEIGHT INCREASED [None]
  - OFF LABEL USE [None]
  - ATRIAL FIBRILLATION [None]
  - HYPERCHOLESTEROLAEMIA [None]
